FAERS Safety Report 4392885-2 (Version None)
Quarter: 2004Q3

REPORT INFORMATION
  Report Type: 
  Country: None (occurrence: None)
  Receive Date: 20040702
  Receipt Date: 20040319
  Transmission Date: 20050211
  Serious: Yes (Other)
  Sender: FDA-Public Use
  Company Number: 2004UW05331

PATIENT
  Age: 82 Year
  Sex: Female
  Weight: 72.5755 kg

DRUGS (3)
  1. CRESTOR [Suspect]
     Indication: BLOOD CHOLESTEROL INCREASED
     Dosage: 10 MG PO
     Route: 048
  2. PRESSURE PILLS [Concomitant]
  3. SUGAR PILLS [Concomitant]

REACTIONS (1)
  - TINNITUS [None]
